FAERS Safety Report 23087942 (Version 1)
Quarter: 2023Q4

REPORT INFORMATION
  Report Type: Spontaneous
  Country: DE (occurrence: DE)
  Receive Date: 20231020
  Receipt Date: 20231020
  Transmission Date: 20240110
  Serious: No
  Sender: FDA-Public Use
  Company Number: DE-ALKEM LABORATORIES LIMITED-DE-ALKEM-2023-07836

PATIENT
  Age: 21 Year
  Sex: Female
  Weight: 52 kg

DRUGS (13)
  1. FINGOLIMOD [Suspect]
     Active Substance: FINGOLIMOD
     Indication: Relapsing-remitting multiple sclerosis
     Dosage: 0.56 MILLIGRAMS, (TABLET)
     Route: 065
     Dates: start: 20201210
  2. BACLOFEN [Concomitant]
     Active Substance: BACLOFEN
     Indication: Pain
     Dosage: 25 MILLIGRAM
     Route: 048
     Dates: start: 20201223
  3. CIMETIDINE [Concomitant]
     Active Substance: CIMETIDINE
     Indication: Premedication
     Dosage: 200 MILLIGRAM (EVERY 6 MONTH)
     Route: 042
     Dates: start: 20221118
  4. COMIRNATY (TOZINAMERAN) [Concomitant]
     Active Substance: TOZINAMERAN
     Indication: COVID-19
     Dosage: 0.3 MILLILITER, ONCE (1 TOTAL)
     Route: 030
     Dates: start: 20210520, end: 20210520
  5. COMIRNATY (TOZINAMERAN) [Concomitant]
     Active Substance: TOZINAMERAN
     Dosage: 0.3 MILLILITER, ONCE (1 TOTAL)
     Route: 030
     Dates: start: 20210701, end: 20210701
  6. COMIRNATY (TOZINAMERAN) [Concomitant]
     Active Substance: TOZINAMERAN
     Dosage: 0.3 MILLILITER
     Route: 030
     Dates: start: 20211222, end: 20211222
  7. CHOLECALCIFEROL [Concomitant]
     Active Substance: CHOLECALCIFEROL
     Indication: Vitamin D deficiency
     Dosage: 20 MILLIGRAM, ONCE WEEKLY (EVERY 1 WEEK)
     Route: 048
  8. DIMETHINDENE MALEATE [Concomitant]
     Active Substance: DIMETHINDENE MALEATE
     Indication: Premedication
     Dosage: UNK (EVERY 6 MONTH)
     Route: 042
     Dates: start: 20221118
  9. IBUPROFEN [Concomitant]
     Active Substance: IBUPROFEN
     Indication: Pain
     Dosage: 600 MILLIGRAM, PRN (1 AS NECESSARY)
     Route: 048
  10. OCREVUS [Concomitant]
     Active Substance: OCRELIZUMAB
     Indication: Multiple sclerosis
     Dosage: 600 MILLIGRAM (EVERY 6 MONTH)
     Route: 042
     Dates: start: 20221118
  11. ACETAMINOPHEN [Concomitant]
     Active Substance: ACETAMINOPHEN
     Indication: Premedication
     Dosage: 300 MILLIGRAM (EVERY 3 MONTH)
     Route: 048
     Dates: start: 20221118
  12. PREGABALIN [Concomitant]
     Active Substance: PREGABALIN
     Indication: Pain
     Dosage: 75 MILLIGRAM, ONCE (1 TOTA)
     Route: 048
     Dates: start: 20220328
  13. VITAMIN B12 [Concomitant]
     Active Substance: CYANOCOBALAMIN
     Indication: Vitamin B12 deficiency
     Dosage: UNK (EVERY 1 MONTH)
     Route: 030

REACTIONS (1)
  - CD34 cell count decreased [Not Recovered/Not Resolved]

NARRATIVE: CASE EVENT DATE: 20221111
